FAERS Safety Report 25327235 (Version 3)
Quarter: 2025Q3

REPORT INFORMATION
  Report Type: Report from Study
  Country: US (occurrence: US)
  Receive Date: 20250517
  Receipt Date: 20250829
  Transmission Date: 20251020
  Serious: Yes (Hospitalization)
  Sender: TAKEDA
  Company Number: US-TAKEDA-2025TUS045294

PATIENT
  Age: 60 Year
  Sex: Male

DRUGS (2)
  1. PONATINIB [Suspect]
     Active Substance: PONATINIB
     Indication: Product used for unknown indication
  2. PONATINIB [Suspect]
     Active Substance: PONATINIB
     Dosage: 30 MILLIGRAM, QD

REACTIONS (3)
  - Staphylococcal infection [Unknown]
  - Platelet count abnormal [Recovered/Resolved]
  - Brain fog [Recovered/Resolved]

NARRATIVE: CASE EVENT DATE: 20250513
